FAERS Safety Report 8514195-1 (Version None)
Quarter: 2012Q3

REPORT INFORMATION
  Report Type: 
  Country: None (occurrence: None)
  Receive Date: 20120717
  Receipt Date: 20120711
  Transmission Date: 20120928
  Serious: Yes (Other)
  Sender: FDA-Public Use
  Company Number: US-PFIZER INC-2012168073

PATIENT
  Sex: Female
  Weight: 90.703 kg

DRUGS (3)
  1. DEPAKOTE [Concomitant]
     Indication: BIPOLAR II DISORDER
     Dosage: UNK, DAILY
  2. ENBREL [Suspect]
     Indication: RHEUMATOID ARTHRITIS
     Dosage: UNK
  3. CELEBREX [Suspect]
     Indication: RHEUMATOID ARTHRITIS
     Dosage: 200 MG, 2X/DAY
     Dates: end: 20120101

REACTIONS (4)
  - MUSCULOSKELETAL STIFFNESS [None]
  - ROAD TRAFFIC ACCIDENT [None]
  - JOINT RANGE OF MOTION DECREASED [None]
  - PAIN [None]
